FAERS Safety Report 20731873 (Version 4)
Quarter: 2023Q1

REPORT INFORMATION
  Report Type: Spontaneous
  Country: US (occurrence: US)
  Receive Date: 20220420
  Receipt Date: 20230309
  Transmission Date: 20230418
  Serious: No
  Sender: FDA-Public Use
  Company Number: US-PFIZER INC-202200334761

PATIENT
  Age: 61 Year
  Sex: Female

DRUGS (3)
  1. IBRANCE [Suspect]
     Active Substance: PALBOCICLIB
     Dosage: UNK
     Dates: start: 20220213
  2. IBRANCE [Suspect]
     Active Substance: PALBOCICLIB
     Dosage: UNK
     Dates: start: 20220302
  3. IBRANCE [Suspect]
     Active Substance: PALBOCICLIB
     Dosage: 125 MG

REACTIONS (8)
  - Hyperhidrosis [Recovered/Resolved]
  - Headache [Recovered/Resolved]
  - Diarrhoea [Recovered/Resolved]
  - Hypersensitivity [Recovered/Resolved]
  - Cough [Unknown]
  - Hot flush [Unknown]
  - Fatigue [Unknown]
  - Weight increased [Unknown]

NARRATIVE: CASE EVENT DATE: 20220101
